FAERS Safety Report 7880437-9 (Version None)
Quarter: 2011Q4

REPORT INFORMATION
  Report Type: 
  Country: None (occurrence: None)
  Receive Date: 20111101
  Receipt Date: 20111025
  Transmission Date: 20120403
  Serious: Yes (Hospitalization)
  Sender: FDA-Public Use
  Company Number: PHHY2011US34235

PATIENT
  Sex: Male
  Weight: 98.866 kg

DRUGS (7)
  1. DILTIAZEM HCL [Concomitant]
     Dosage: UNK OT, UNK
  2. LOVASTATIN [Concomitant]
     Dosage: UNK OT, UNK
  3. GILENYA [Suspect]
     Indication: MULTIPLE SCLEROSIS
     Dosage: 0.5 MG, QD
     Route: 048
     Dates: start: 20110408, end: 20110408
  4. COUMADIN [Concomitant]
     Dosage: UNK OT, UNK
  5. CITALOPRAM HYDROBROMIDE [Concomitant]
     Dosage: UNK OT, UNK
  6. AMBIEN [Concomitant]
     Dosage: UNK OT, UNK
  7. REQUIP [Concomitant]
     Dosage: UNK OT, UNK

REACTIONS (5)
  - HYPOTENSION [None]
  - CHEST PAIN [None]
  - VOMITING [None]
  - FACE OEDEMA [None]
  - HEADACHE [None]
